FAERS Safety Report 4635189-2 (Version None)
Quarter: 2005Q2

REPORT INFORMATION
  Report Type: 
  Country: None (occurrence: None)
  Receive Date: 20050414
  Receipt Date: 20050406
  Transmission Date: 20051028
  Serious: Yes (Hospitalization)
  Sender: FDA-Public Use
  Company Number: JP-BOEHRINGER INGELHEIM PHARMACEUTICALS, INC.-2005-BP-05695NB

PATIENT
  Sex: Male

DRUGS (6)
  1. SPIRIVA [Suspect]
     Indication: EMPHYSEMA
     Route: 055
     Dates: start: 20050316, end: 20050329
  2. VASOLAN [Concomitant]
     Route: 048
     Dates: start: 20041106
  3. PULMICORT [Concomitant]
     Route: 055
     Dates: start: 20041201
  4. DIGOXIN [Concomitant]
     Route: 048
     Dates: start: 20050216
  5. DAI-KENCHU-TO [Concomitant]
     Indication: CONSTIPATION
     Route: 048
     Dates: start: 20050216
  6. DAI-KENCHU-TO [Concomitant]
     Indication: DIARRHOEA

REACTIONS (1)
  - VOLVULUS OF BOWEL [None]
